FAERS Safety Report 7097409-7 (Version None)
Quarter: 2010Q4

REPORT INFORMATION
  Report Type: 
  Country: None (occurrence: None)
  Receive Date: 20101111
  Receipt Date: 20101110
  Transmission Date: 20110411
  Serious: Yes (Hospitalization)
  Sender: FDA-Public Use
  Company Number: DE-PFIZER INC-2010144378

PATIENT
  Age: 14 Year
  Sex: Female
  Weight: 40 kg

DRUGS (1)
  1. ALPRAZOLAM [Suspect]
     Indication: SUICIDE ATTEMPT
     Dosage: 10 MG, UNK
     Dates: start: 20100821

REACTIONS (3)
  - BLOOD GLUCOSE INCREASED [None]
  - COMA SCALE ABNORMAL [None]
  - INTENTIONAL OVERDOSE [None]
